FAERS Safety Report 15330439 (Version 1)
Quarter: 2018Q3

REPORT INFORMATION
  Report Type: Spontaneous
  Country: DK (occurrence: DK)
  Receive Date: 20180829
  Receipt Date: 20180829
  Transmission Date: 20181010
  Serious: Yes (Other)
  Sender: FDA-Public Use
  Company Number: DK-PFIZER INC-2018341516

PATIENT
  Age: 32 Year
  Sex: Female
  Weight: 140 kg

DRUGS (4)
  1. BENADRYL [Concomitant]
     Active Substance: DIPHENHYDRAMINE HYDROCHLORIDE
     Indication: HYPERSENSITIVITY
     Dosage: 24 MG, 1X/DAY
     Route: 048
     Dates: start: 2000
  2. BRINTELLIX [Concomitant]
     Active Substance: VORTIOXETINE HYDROBROMIDE
     Indication: POST-TRAUMATIC STRESS DISORDER
     Dosage: 10 MG, 1X/DAY
     Route: 048
     Dates: start: 2016
  3. ESOMEPRAZOL ACTAVIS [Concomitant]
     Active Substance: ESOMEPRAZOLE
     Indication: GASTRIC PH DECREASED
     Dosage: 40 MG, 1X/DAY
     Route: 048
     Dates: start: 2000
  4. PROVERA [Suspect]
     Active Substance: MEDROXYPROGESTERONE ACETATE
     Indication: AMENORRHOEA
     Dosage: 2 TABLETS EVERY MORNING
     Route: 048
     Dates: start: 20180713, end: 20180716

REACTIONS (3)
  - Indifference [Recovered/Resolved]
  - Depression [Recovered/Resolved]
  - Suicidal ideation [Recovered/Resolved]

NARRATIVE: CASE EVENT DATE: 20180714
